FAERS Safety Report 6077068-2 (Version None)
Quarter: 2009Q1

REPORT INFORMATION
  Report Type: 
  Country: None (occurrence: None)
  Receive Date: 20090212
  Receipt Date: 20090212
  Transmission Date: 20090719
  Serious: Yes (Hospitalization)
  Sender: FDA-Public Use
  Company Number: None

PATIENT
  Age: 82 Year
  Sex: Male

DRUGS (1)
  1. PHENOBARBITAL TAB [Suspect]
     Indication: CONVULSION
     Dosage: 60 MG BID PO
     Route: 048
     Dates: end: 20090121

REACTIONS (2)
  - CONFUSIONAL STATE [None]
  - THERAPEUTIC AGENT TOXICITY [None]
